FAERS Safety Report 5491798-2 (Version None)
Quarter: 2007Q4

REPORT INFORMATION
  Report Type: 
  Country: None (occurrence: None)
  Receive Date: 20071018
  Receipt Date: 20071018
  Transmission Date: 20080405
  Serious: Yes (Other)
  Sender: FDA-Public Use
  Company Number: None

PATIENT
  Age: 40 Year
  Sex: Female
  Weight: 109 kg

DRUGS (3)
  1. ABRAXANE [Suspect]
     Indication: METASTATIC MALIGNANT MELANOMA
     Dosage: 210 MG ONCE IV
     Route: 042
     Dates: start: 20070910
  2. ABRAXANE [Suspect]
     Indication: METASTATIC MALIGNANT MELANOMA
     Dosage: 210 MG ONCE IV
     Route: 042
     Dates: start: 20070912
  3. ABRAXANE [Suspect]
     Indication: METASTATIC MALIGNANT MELANOMA
     Dosage: 210 MG ONCE IV
     Route: 042
     Dates: start: 20070919

REACTIONS (3)
  - DRUG HYPERSENSITIVITY [None]
  - ERYTHEMA MULTIFORME [None]
  - TYPE IV HYPERSENSITIVITY REACTION [None]
